FAERS Safety Report 6909627-6 (Version None)
Quarter: 2010Q3

REPORT INFORMATION
  Report Type: 
  Country: None (occurrence: None)
  Receive Date: 20100805
  Receipt Date: 20100729
  Transmission Date: 20110219
  Serious: Yes (Other)
  Sender: FDA-Public Use
  Company Number: JP-MERCK-1008USA00056

PATIENT
  Age: 11 Year
  Sex: Male

DRUGS (10)
  1. PEPCID [Suspect]
     Route: 048
  2. CEFAMEZIN [Suspect]
     Route: 041
  3. DIAZEPAN [Concomitant]
     Route: 065
  4. AMPICILLIN [Concomitant]
     Route: 065
  5. TAKEPRON [Concomitant]
     Route: 065
  6. ROCEPHIN [Concomitant]
     Route: 065
  7. BIOFERMIN R [Concomitant]
     Route: 065
  8. RISPERDAL [Concomitant]
     Route: 065
  9. CALONAL [Concomitant]
     Route: 065
  10. PHENOBARBITAL [Suspect]
     Route: 065

REACTIONS (1)
  - DRUG RASH WITH EOSINOPHILIA AND SYSTEMIC SYMPTOMS [None]
